FAERS Safety Report 7785820-8 (Version None)
Quarter: 2011Q3

REPORT INFORMATION
  Report Type: 
  Country: None (occurrence: None)
  Receive Date: 20110929
  Receipt Date: 20110914
  Transmission Date: 20111222
  Serious: No
  Sender: FDA-Public Use
  Company Number: US-B.I. PHARMACEUTICALS,INC./RIDGEFIELD-2011-BP-18749BP

PATIENT
  Sex: Female

DRUGS (10)
  1. ZETIA [Concomitant]
     Indication: BLOOD CHOLESTEROL INCREASED
     Dosage: 10 MG
     Route: 048
     Dates: start: 20110707
  2. ATENOLOL [Concomitant]
     Indication: ATRIAL FLUTTER
     Dosage: 25 MG
     Route: 048
  3. SYNTHROID [Concomitant]
     Indication: HYPOTHYROIDISM
     Dosage: 0.075 MG
     Route: 048
  4. PRILOSEC [Concomitant]
     Indication: DYSPEPSIA
     Dosage: 40 MG
     Route: 048
  5. DICLOFENAC [Concomitant]
     Indication: NECK PAIN
     Route: 048
  6. ASTEPRO [Concomitant]
     Route: 045
  7. PATADAY [Concomitant]
     Route: 031
  8. PRADAXA [Suspect]
     Indication: ATRIAL FLUTTER
     Dosage: 300 MG
     Route: 048
     Dates: start: 20110726, end: 20110727
  9. GLUCOPHAGE [Concomitant]
     Dosage: 1000 MG
  10. ATACAND [Concomitant]
     Dosage: 4 MG
     Route: 048

REACTIONS (3)
  - HEART RATE INCREASED [None]
  - ANXIETY [None]
  - NIGHTMARE [None]
